FAERS Safety Report 6528656-8 (Version None)
Quarter: 2010Q1

REPORT INFORMATION
  Report Type: 
  Country: None (occurrence: None)
  Receive Date: 20100105
  Receipt Date: 20100105
  Transmission Date: 20100710
  Serious: Yes (Other)
  Sender: FDA-Public Use
  Company Number: None

PATIENT
  Age: 31 Year
  Sex: Male
  Weight: 68.1 kg

DRUGS (5)
  1. EVEROLIMUS [Suspect]
     Indication: THYROID CANCER
     Dosage: 10MG DAILY ORAL
     Route: 048
     Dates: start: 20090915, end: 20091209
  2. CALCITRIOL [Concomitant]
  3. CALCIUM CARBONATE [Concomitant]
  4. LEVOTHYROXINE SODIUM [Concomitant]
  5. LIDOCAINE HCL VISCOUS [Concomitant]

REACTIONS (2)
  - BLOOD AMYLASE [None]
  - LIPASE INCREASED [None]
